FAERS Safety Report 5018902-4 (Version None)
Quarter: 2006Q2

REPORT INFORMATION
  Report Type: 
  Country: None (occurrence: None)
  Receive Date: 20060531
  Receipt Date: 20060523
  Transmission Date: 20061013
  Serious: Yes (Other)
  Sender: FDA-Public Use
  Company Number: 2006067321

PATIENT
  Age: 63 Year
  Sex: Male
  Weight: 102.5129 kg

DRUGS (13)
  1. CARDURA [Suspect]
     Indication: ILL-DEFINED DISORDER
     Dosage: 8 MG (8 MG, DAILY INTERVAL:  EVERY DAY),
     Dates: start: 20060101, end: 20060523
  2. MAG-OX (MAGNESIUM OXIDE) [Concomitant]
  3. CLONIDINE [Concomitant]
  4. CYTOTEC [Concomitant]
  5. FOLIC ACID [Concomitant]
  6. ALLOPURINOL [Concomitant]
  7. FUROSEMIDE [Concomitant]
  8. AVANDIA [Concomitant]
  9. METFORMIN [Concomitant]
  10. LISINOPRIL [Concomitant]
  11. LOVASTATIN [Concomitant]
  12. TOPROL-XL [Concomitant]
  13. POTASSIUM (POTASSIUM) [Concomitant]

REACTIONS (7)
  - ASTHENIA [None]
  - ATRIAL FIBRILLATION [None]
  - CONDITION AGGRAVATED [None]
  - DIFFICULTY IN WALKING [None]
  - DYSSTASIA [None]
  - FALL [None]
  - HEART RATE IRREGULAR [None]
